FAERS Safety Report 22395047 (Version 5)
Quarter: 2025Q3

REPORT INFORMATION
  Report Type: Report from Study
  Country: CA (occurrence: CA)
  Receive Date: 20230601
  Receipt Date: 20250826
  Transmission Date: 20251021
  Serious: Yes (Death, Hospitalization, Other)
  Sender: BIOCON
  Company Number: CA-MYLANLABS-2023M1048338

PATIENT

DRUGS (2)
  1. HULIO [Suspect]
     Active Substance: ADALIMUMAB-FKJP
     Indication: Necrobiosis lipoidica diabeticorum
     Dosage: 40 MILLIGRAM, QWEEK
     Route: 058
     Dates: start: 20230717
  2. HULIO [Suspect]
     Active Substance: ADALIMUMAB-FKJP
     Indication: Hidradenitis

REACTIONS (7)
  - Death [Fatal]
  - Hospitalisation [Unknown]
  - Dyspnoea [Unknown]
  - Wound infection [Unknown]
  - Injection site erythema [Recovered/Resolved]
  - Injection site swelling [Recovered/Resolved]
  - Off label use [Unknown]

NARRATIVE: CASE EVENT DATE: 20250813
